FAERS Safety Report 4445528-3 (Version None)
Quarter: 2004Q3

REPORT INFORMATION
  Report Type: 
  Country: None (occurrence: None)
  Receive Date: 20040910
  Receipt Date: 20040831
  Transmission Date: 20050211
  Serious: Yes (Life-Threatening, Hospitalization, Other)
  Sender: FDA-Public Use
  Company Number: JP-JNJFOC-20031200521

PATIENT
  Sex: Female
  Weight: 71 kg

DRUGS (14)
  1. REMICADE [Suspect]
     Dosage: 3MG/KG
     Route: 041
  2. REMICADE [Suspect]
     Indication: RHEUMATOID ARTHRITIS
     Route: 041
  3. RHEUMATREX [Concomitant]
     Route: 049
     Dates: start: 20030601, end: 20031205
  4. GANATON [Concomitant]
     Route: 049
  5. ONE ALPHA [Concomitant]
     Route: 049
  6. RIMATIL [Concomitant]
     Route: 049
  7. LASIX [Concomitant]
     Route: 049
  8. RINDERON [Concomitant]
     Route: 049
     Dates: start: 20030604
  9. LOXONIN [Concomitant]
     Route: 049
  10. CINAL [Concomitant]
     Route: 049
  11. CINAL [Concomitant]
     Route: 049
  12. ACINON [Concomitant]
     Route: 049
  13. GLORIAMIN [Concomitant]
     Route: 065
  14. GLORIAMIN [Concomitant]
     Route: 065

REACTIONS (14)
  - ATELECTASIS [None]
  - BACK PAIN [None]
  - BLOOD LACTATE DEHYDROGENASE INCREASED [None]
  - C-REACTIVE PROTEIN INCREASED [None]
  - ECZEMA [None]
  - HERPES ZOSTER [None]
  - IMMUNE SYSTEM DISORDER [None]
  - LYMPHOCYTE PERCENTAGE DECREASED [None]
  - MONOCYTE PERCENTAGE DECREASED [None]
  - PAIN [None]
  - PLATELET COUNT DECREASED [None]
  - PNEUMOCYSTIS CARINII PNEUMONIA [None]
  - PNEUMONIA KLEBSIELLA [None]
  - RED BLOOD CELL COUNT DECREASED [None]
